FAERS Safety Report 14290125 (Version 1)
Quarter: 2017Q4

REPORT INFORMATION
  Report Type: Spontaneous
  Country: US (occurrence: US)
  Receive Date: 20171215
  Receipt Date: 20171215
  Transmission Date: 20180321
  Serious: No
  Sender: FDA-Public Use
  Company Number: US-TEVA-760943ACC

PATIENT
  Age: 79 Year
  Sex: Female

DRUGS (2)
  1. OXYTROL [Suspect]
     Active Substance: OXYBUTYNIN
     Dosage: 1 DOSAGE FORMS DAILY;
     Route: 062
     Dates: start: 20170323, end: 20170327
  2. OXYTROL [Suspect]
     Active Substance: OXYBUTYNIN
     Indication: HYPERTONIC BLADDER
     Dosage: 1 DOSAGE FORMS DAILY;
     Route: 062
     Dates: start: 20170319, end: 20170323

REACTIONS (2)
  - Laceration [Recovering/Resolving]
  - Skin haemorrhage [Recovering/Resolving]
